FAERS Safety Report 19129877 (Version 1)
Quarter: 2021Q2

REPORT INFORMATION
  Report Type: Report from Study
  Country: CA (occurrence: CA)
  Receive Date: 20210413
  Receipt Date: 20210413
  Transmission Date: 20210717
  Serious: Yes (Hospitalization)
  Sender: FDA-Public Use
  Company Number: CA-PFIZER INC-2021360735

PATIENT
  Sex: Female

DRUGS (42)
  1. ACETAMINOPHEN. [Concomitant]
     Active Substance: ACETAMINOPHEN
     Dosage: 325 MG
     Route: 048
  2. BISACODYL. [Concomitant]
     Active Substance: BISACODYL
  3. DIPHENHYDRAMINE HYDROCHLORIDE. [Concomitant]
     Active Substance: DIPHENHYDRAMINE HYDROCHLORIDE
     Dosage: 50 MG
  4. LEVEMIR [Concomitant]
     Active Substance: INSULIN DETEMIR
  5. LOSEC [Concomitant]
     Active Substance: OMEPRAZOLE
  6. METHYLPREDNISOLONE. [Concomitant]
     Active Substance: METHYLPREDNISOLONE
     Dosage: 25 MG
     Route: 042
  7. PREDNISONE. [Concomitant]
     Active Substance: PREDNISONE
  8. SINGULAIR [Concomitant]
     Active Substance: MONTELUKAST SODIUM
  9. ACETAMINOPHEN. [Concomitant]
     Active Substance: ACETAMINOPHEN
     Dosage: 650 MG
     Route: 048
  10. CYCLOBENZAPRINE. [Concomitant]
     Active Substance: CYCLOBENZAPRINE
  11. DIPHENHYDRAMINE HYDROCHLORIDE. [Concomitant]
     Active Substance: DIPHENHYDRAMINE HYDROCHLORIDE
     Dosage: 25 MG
     Route: 048
  12. METHYLPREDNISOLONE. [Concomitant]
     Active Substance: METHYLPREDNISOLONE
     Dosage: 50 MG
     Route: 042
  13. VOLTAREN [DICLOFENAC] [Concomitant]
     Active Substance: DICLOFENAC SODIUM
  14. DIPHENHYDRAMINE HYDROCHLORIDE. [Concomitant]
     Active Substance: DIPHENHYDRAMINE HYDROCHLORIDE
     Dosage: 50 MG
  15. LIPITOR [Concomitant]
     Active Substance: ATORVASTATIN CALCIUM
     Route: 065
  16. METHYLPREDNISOLONE. [Concomitant]
     Active Substance: METHYLPREDNISOLONE
     Dosage: 100 MG
     Route: 042
  17. METHYLPREDNISOLONE. [Concomitant]
     Active Substance: METHYLPREDNISOLONE
     Dosage: 25 MG
     Route: 042
  18. SYNTHROID [Concomitant]
     Active Substance: LEVOTHYROXINE SODIUM
  19. VENTOLIN [Concomitant]
     Active Substance: ALBUTEROL SULFATE
  20. RITUXIMAB. [Suspect]
     Active Substance: RITUXIMAB
     Indication: RHEUMATOID ARTHRITIS
     Dosage: 1000 MG, 1 EVERY 15 DAYS
     Route: 042
  21. ACETYLSALICYLIC ACID [Concomitant]
     Active Substance: ASPIRIN
  22. METOPROLOL. [Concomitant]
     Active Substance: METOPROLOL
  23. RALIVIA [Concomitant]
     Active Substance: TRAMADOL HYDROCHLORIDE
  24. RAMIPRIL. [Concomitant]
     Active Substance: RAMIPRIL
  25. CLOPIDOGREL BISULFATE. [Concomitant]
     Active Substance: CLOPIDOGREL BISULFATE
  26. FLUTICASONE PROPIONATE. [Concomitant]
     Active Substance: FLUTICASONE PROPIONATE
  27. FUROSEMIDE. [Concomitant]
     Active Substance: FUROSEMIDE
     Route: 065
  28. TYLENOL [Concomitant]
     Active Substance: ACETAMINOPHEN
  29. DIPHENHYDRAMINE HYDROCHLORIDE. [Concomitant]
     Active Substance: DIPHENHYDRAMINE HYDROCHLORIDE
     Dosage: 50 MG
  30. HYDROMORPH CONTIN [Concomitant]
     Active Substance: HYDROMORPHONE
  31. LYRICA [Concomitant]
     Active Substance: PREGABALIN
  32. METHYLPREDNISOLONE. [Concomitant]
     Active Substance: METHYLPREDNISOLONE
     Dosage: 50 MG
     Route: 042
  33. ACETAMINOPHEN. [Concomitant]
     Active Substance: ACETAMINOPHEN
     Dosage: 650 MG
     Route: 048
  34. ACETAMINOPHEN. [Concomitant]
     Active Substance: ACETAMINOPHEN
     Dosage: 650 MG
     Route: 048
  35. METHYLPREDNISOLONE. [Concomitant]
     Active Substance: METHYLPREDNISOLONE
     Dosage: 50 MG
     Route: 042
  36. ACETAMINOPHEN. [Concomitant]
     Active Substance: ACETAMINOPHEN
     Dosage: 325 MG
     Route: 048
  37. ADVAIR HFA [Concomitant]
     Active Substance: FLUTICASONE PROPIONATE\SALMETEROL XINAFOATE
  38. ATIVAN [Concomitant]
     Active Substance: LORAZEPAM
  39. DIPHENHYDRAMINE HYDROCHLORIDE. [Concomitant]
     Active Substance: DIPHENHYDRAMINE HYDROCHLORIDE
     Dosage: 25 MG
  40. DOCUSATE SODIUM. [Concomitant]
     Active Substance: DOCUSATE SODIUM
  41. ERGOCALCIFEROL. [Concomitant]
     Active Substance: ERGOCALCIFEROL
  42. METHYLPREDNISOLONE. [Concomitant]
     Active Substance: METHYLPREDNISOLONE
     Dosage: 100 MG
     Route: 042

REACTIONS (1)
  - Chest pain [Recovered/Resolved]
